FAERS Safety Report 17216240 (Version 1)
Quarter: 2019Q4

REPORT INFORMATION
  Report Type: Spontaneous
  Country: DE (occurrence: DE)
  Receive Date: 20191230
  Receipt Date: 20191230
  Transmission Date: 20200122
  Serious: Yes (Congenital Anomaly)
  Sender: FDA-Public Use
  Company Number: DE-ASCEND THERAPEUTICS US, LLC-2078334

PATIENT
  Sex: Female

DRUGS (6)
  1. MOXIFLOXACIN. [Suspect]
     Active Substance: MOXIFLOXACIN
     Route: 064
  2. PARACETAMOL (UNKNOWN)?INDICATION FOR USE: PAIN [Suspect]
     Active Substance: ACETAMINOPHEN
     Route: 064
  3. PROGESTERONE. [Suspect]
     Active Substance: PROGESTERONE
     Route: 064
  4. LEVOTHYROXINE. [Suspect]
     Active Substance: LEVOTHYROXINE
     Route: 064
  5. ESTROGEL [Suspect]
     Active Substance: ESTRADIOL
     Route: 064
  6. INSULIN (UNKNOWN) [Suspect]
     Active Substance: INSULIN NOS
     Route: 064

REACTIONS (2)
  - Foetal exposure during pregnancy [None]
  - Patent ductus arteriosus [Recovered/Resolved]
